FAERS Safety Report 7793951 (Version 4)
Quarter: 2015Q1

REPORT INFORMATION
  Report Type: Spontaneous
  Country: US (occurrence: US)
  Receive Date: 20110201
  Receipt Date: 20150323
  Transmission Date: 20150721
  Serious: Yes (Hospitalization, Disabling)
  Sender: FDA-Public Use
  Company Number: US-BAYER-2011-009638

PATIENT
  Age: 40 Year
  Sex: Female
  Weight: 74.83 kg

DRUGS (12)
  1. METHYLPREDNISOLONE. [Concomitant]
     Active Substance: METHYLPREDNISOLONE
     Indication: INFLAMMATION
     Dosage: 4 MG, DAILY
     Dates: start: 20090123, end: 20090206
  2. PROPOXYPHENE. [Concomitant]
     Active Substance: PROPOXYPHENE
  3. NABUMETONE. [Concomitant]
     Active Substance: NABUMETONE
     Indication: ANALGESIC THERAPY
     Dosage: 750 MG, DAILY
     Dates: start: 20090123, end: 20090206
  4. YAZ [Suspect]
     Active Substance: DROSPIRENONE\ETHINYL ESTRADIOL
     Indication: CONTRACEPTION
     Dosage: UNK
     Dates: start: 200801, end: 200901
  5. RELAFEN [Concomitant]
     Active Substance: NABUMETONE
     Dosage: UNK
     Route: 048
     Dates: start: 20090206
  6. CEPHALEXIN. [Concomitant]
     Active Substance: CEPHALEXIN
     Indication: URINARY TRACT INFECTION
     Dosage: 500 MG, DAILY
     Dates: start: 20090123, end: 20090206
  7. PHENAZOPYRIDINE. [Concomitant]
     Active Substance: PHENAZOPYRIDINE
     Indication: URINARY TRACT INFECTION
     Dosage: 200 MG, DAILY
     Dates: start: 20090123, end: 20090206
  8. ALPRAZOLAM. [Concomitant]
     Active Substance: ALPRAZOLAM
  9. PHENTERMINE [Concomitant]
     Active Substance: PHENTERMINE
     Dosage: 7.5 MG, UNK
     Route: 048
     Dates: start: 20081111
  10. ADIPEX-P [Concomitant]
     Active Substance: PHENTERMINE HYDROCHLORIDE
     Indication: WEIGHT DECREASED
     Dosage: 37.5 MG, DAILY
     Dates: start: 20090123
  11. AMBIEN [Concomitant]
     Active Substance: ZOLPIDEM TARTRATE
  12. SULFAMETHOXAZOLE-TRIMETHOPRIM (SMZ) [Concomitant]
     Active Substance: SULFAMETHOXAZOLE\TRIMETHOPRIM
     Dosage: UNK
     Route: 048
     Dates: start: 20081229

REACTIONS (5)
  - Cerebrovascular accident [None]
  - Cerebral infarction [None]
  - Learning disorder [None]
  - Embolic stroke [None]
  - Pain [None]

NARRATIVE: CASE EVENT DATE: 20090206
